FAERS Safety Report 5655749-X (Version None)
Quarter: 2008Q1

REPORT INFORMATION
  Report Type: 
  Country: None (occurrence: None)
  Receive Date: 20080307
  Receipt Date: 20080306
  Transmission Date: 20080703
  Serious: No
  Sender: FDA-Public Use
  Company Number: US-BAXTER-2008BH001850

PATIENT
  Age: 51 Year
  Sex: Male
  Weight: 95 kg

DRUGS (9)
  1. HEPARIN SODIUM [Suspect]
     Indication: PROPHYLAXIS
     Route: 033
     Dates: start: 20071201, end: 20080101
  2. HUMALOG [Concomitant]
     Indication: TYPE 1 DIABETES MELLITUS
     Dosage: DOSE UNIT:UNKNOWN
     Route: 058
  3. IRON [Concomitant]
     Indication: MINERAL SUPPLEMENTATION
     Route: 048
  4. MAVIK [Concomitant]
     Indication: HYPERTENSION
     Route: 048
  5. PROCARDIA XL [Concomitant]
     Indication: HYPERTENSION
     Route: 048
  6. RENAL VITAMINS [Concomitant]
     Indication: VITAMIN SUPPLEMENTATION
     Route: 048
  7. VICODIN [Concomitant]
     Indication: DIABETIC NEUROPATHY
     Route: 048
  8. XANAX [Concomitant]
     Indication: SLEEP DISORDER
     Route: 048
  9. DIANEAL [Concomitant]
     Indication: PERITONEAL DIALYSIS
     Route: 033

REACTIONS (6)
  - ABDOMINAL PAIN UPPER [None]
  - CATHETER SITE INFECTION [None]
  - DIARRHOEA [None]
  - HYPERHIDROSIS [None]
  - NAUSEA [None]
  - VOMITING [None]
